FAERS Safety Report 4819436-X (Version None)
Quarter: 2005Q4

REPORT INFORMATION
  Report Type: 
  Country: None (occurrence: None)
  Receive Date: 20051103
  Receipt Date: 20051025
  Transmission Date: 20060501
  Serious: Yes (Other)
  Sender: FDA-Public Use
  Company Number: US-JNJFOC-20051005874

PATIENT
  Sex: Female

DRUGS (2)
  1. DURAGESIC-100 [Suspect]
     Indication: DRUG USE FOR UNKNOWN INDICATION
     Route: 062
  2. COUGH DROPS [Concomitant]

REACTIONS (6)
  - EUPHORIC MOOD [None]
  - FEELING DRUNK [None]
  - PAIN [None]
  - PANIC ATTACK [None]
  - SOMNOLENCE [None]
  - THINKING ABNORMAL [None]
